FAERS Safety Report 5442168-4 (Version None)
Quarter: 2007Q3

REPORT INFORMATION
  Report Type: 
  Country: None (occurrence: None)
  Receive Date: 20070904
  Receipt Date: 20070823
  Transmission Date: 20080115
  Serious: Yes (Other)
  Sender: FDA-Public Use
  Company Number: US-ELI_LILLY_AND_COMPANY-US200708002277

PATIENT
  Age: 53 Year
  Sex: Female
  Weight: 54.875 kg

DRUGS (5)
  1. FORTEO [Suspect]
     Indication: OSTEOPOROSIS
     Dosage: 20 UG, DAILY (1/D)
     Route: 058
     Dates: start: 20060801
  2. WELLBUTRIN XL [Concomitant]
  3. CALCIUM WITH VITAMIN D [Concomitant]
  4. VITAMIN D [Concomitant]
  5. MAGNESIUM SULFATE [Concomitant]
     Dosage: UNK, DAILY (1/D)

REACTIONS (4)
  - CONCUSSION [None]
  - FACIAL BONES FRACTURE [None]
  - FALL [None]
  - LOSS OF CONSCIOUSNESS [None]
